FAERS Safety Report 11982205 (Version 1)
Quarter: 2016Q1

REPORT INFORMATION
  Report Type: Spontaneous
  Country: US (occurrence: None)
  Receive Date: 20160129
  Receipt Date: 20160129
  Transmission Date: 20160526
  Serious: Yes (Hospitalization)
  Sender: FDA-Public Use
  Company Number: None

PATIENT
  Age: 78 Year
  Sex: Female
  Weight: 56.7 kg

DRUGS (12)
  1. MAG OX [Concomitant]
     Active Substance: MAGNESIUM OXIDE
  2. FLONASE [Concomitant]
     Active Substance: FLUTICASONE PROPIONATE
  3. ZOFRAN [Concomitant]
     Active Substance: ONDANSETRON HYDROCHLORIDE
  4. COZAAR [Concomitant]
     Active Substance: LOSARTAN POTASSIUM
  5. MUCINEX [Concomitant]
     Active Substance: GUAIFENESIN
  6. FENTANYL. [Suspect]
     Active Substance: FENTANYL
     Indication: SEDATION
     Route: 042
  7. PEPCID [Concomitant]
     Active Substance: FAMOTIDINE
  8. VANCOMYCIN [Concomitant]
     Active Substance: VANCOMYCIN
  9. LIDOCAINE. [Concomitant]
     Active Substance: LIDOCAINE
  10. ASTELIN [Concomitant]
     Active Substance: AZELASTINE HYDROCHLORIDE
  11. LOPRESSOR [Concomitant]
     Active Substance: METOPROLOL TARTRATE
  12. MIDAZOLAM [Suspect]
     Active Substance: MIDAZOLAM\MIDAZOLAM HYDROCHLORIDE
     Indication: SEDATION
     Route: 042

REACTIONS (3)
  - Procedural complication [None]
  - Respiratory distress [None]
  - Somnolence [None]

NARRATIVE: CASE EVENT DATE: 20150601
